FAERS Safety Report 13126852 (Version 1)
Quarter: 2017Q1

REPORT INFORMATION
  Report Type: Spontaneous
  Country: US (occurrence: US)
  Receive Date: 20170118
  Receipt Date: 20170118
  Transmission Date: 20170428
  Serious: No
  Sender: FDA-Public Use
  Company Number: US-SHIRE-US201620189

PATIENT
  Age: 29 Year
  Sex: Female

DRUGS (1)
  1. DEXTROAMPHET SACCHARAT, AMPHET ASPARTATE, DEXTROAMPHET SULFATE AND AMPHET SULFAT [Suspect]
     Active Substance: AMPHETAMINE ASPARTATE\AMPHETAMINE SULFATE\DEXTROAMPHETAMINE SACCHARATE\DEXTROAMPHETAMINE SULFATE
     Indication: ATTENTION DEFICIT/HYPERACTIVITY DISORDER
     Dosage: 30 MG, UNKNOWN
     Route: 048
     Dates: start: 20161223, end: 20161227

REACTIONS (12)
  - Migraine [Unknown]
  - Tooth fracture [Unknown]
  - Nausea [Unknown]
  - Dysgeusia [Unknown]
  - Ear discomfort [Unknown]
  - Performance status decreased [Unknown]
  - Tooth disorder [Unknown]
  - Vomiting [Unknown]
  - Nasal congestion [Unknown]
  - Dental caries [Unknown]
  - Toothache [Unknown]
  - Abdominal distension [Unknown]

NARRATIVE: CASE EVENT DATE: 20161223
